FAERS Safety Report 4347751-5 (Version None)
Quarter: 2004Q2

REPORT INFORMATION
  Report Type: 
  Country: None (occurrence: None)
  Receive Date: 20040422
  Receipt Date: 20040409
  Transmission Date: 20050107
  Serious: Yes (Hospitalization)
  Sender: FDA-Public Use
  Company Number: A03200401107

PATIENT
  Age: 30 Year
  Sex: Female
  Weight: 52.6173 kg

DRUGS (9)
  1. ELOXATIN [Suspect]
     Indication: COLORECTAL CANCER STAGE III
     Dosage: 200 MG Q2W - INTRAVENOUS NOS
     Route: 042
     Dates: start: 20040122, end: 20040122
  2. LEUCOVORIN CALCIUM [Concomitant]
  3. FLUOROURACIL [Concomitant]
  4. PALONOSETRON [Concomitant]
  5. DIPHENHYDRAMINE HCL [Concomitant]
  6. DEXAMETHASONE [Concomitant]
  7. LORAZEPAM [Concomitant]
  8. CHLORPHENIRAMINE MALEATE [Concomitant]
  9. ACETAMINOPHEN [Concomitant]

REACTIONS (2)
  - EOSINOPHILIC PNEUMONIA [None]
  - HEART RATE INCREASED [None]
